FAERS Safety Report 9030998 (Version 2)
Quarter: 2013Q1

REPORT INFORMATION
  Report Type: Spontaneous
  Country: CH (occurrence: CH)
  Receive Date: 20130123
  Receipt Date: 20130302
  Transmission Date: 20140127
  Serious: Yes (Hospitalization)
  Sender: FDA-Public Use
  Company Number: PHHY2013CH005308

PATIENT
  Age: 77 Year
  Sex: Female

DRUGS (5)
  1. VERAPAMIL [Suspect]
     Indication: HEART RATE INCREASED
     Dosage: 120 MG, DAILY
  2. BISOPROLOL [Suspect]
     Indication: ATRIAL FIBRILLATION
     Dosage: 5 MG, DAILY
  3. BISOPROLOL [Suspect]
     Indication: TACHYCARDIA
     Dosage: 10 MG, DAILY
  4. PHENPROCOUMON [Concomitant]
     Indication: TACHYCARDIA
  5. PHENPROCOUMON [Concomitant]
     Indication: ATRIAL FIBRILLATION

REACTIONS (14)
  - Cardiogenic shock [Recovered/Resolved]
  - Ejection fraction decreased [Unknown]
  - Dyspnoea [Unknown]
  - Weight increased [Unknown]
  - Tachycardia [Unknown]
  - Fatigue [Unknown]
  - Renal failure acute [Unknown]
  - Anuria [Unknown]
  - Metabolic acidosis [Unknown]
  - Coagulopathy [Unknown]
  - Atrial fibrillation [Unknown]
  - Hepatic function abnormal [Recovered/Resolved]
  - Renal impairment [Recovered/Resolved]
  - Condition aggravated [Recovered/Resolved]
